FAERS Safety Report 15123232 (Version 8)
Quarter: 2019Q1

REPORT INFORMATION
  Report Type: Report from Study
  Country: None (occurrence: NL)
  Receive Date: 20180709
  Receipt Date: 20190312
  Transmission Date: 20190417
  Serious: No
  Sender: FDA-Public Use
  Company Number: NL-ABBVIE-17K-114-2004338-00

PATIENT
  Age: 74 Year
  Sex: Female
  Weight: 50 kg

DRUGS (11)
  1. DUODOPA [Suspect]
     Active Substance: CARBIDOPA\LEVODOPA
     Indication: PARKINSON^S DISEASE
     Dosage: MORNING DOSE: 9.0 CONTINUOUS DOSE:2.9 EXTRA DOSE: 2.
     Route: 050
     Dates: start: 20170529, end: 201706
  2. DUODOPA [Suspect]
     Active Substance: CARBIDOPA\LEVODOPA
     Dosage: MD: 7.5, CD: 2.3, ED: 2.0
     Route: 050
  3. DUODOPA [Suspect]
     Active Substance: CARBIDOPA\LEVODOPA
     Dosage: MD: 6.7 CD: 2.4 ED: 2.
     Route: 050
  4. DUODOPA [Suspect]
     Active Substance: CARBIDOPA\LEVODOPA
     Dosage: REDUCE THE CONTINUOUS DOSE WITH 0.2ML
     Route: 050
     Dates: start: 2017, end: 2017
  5. DUODOPA [Suspect]
     Active Substance: CARBIDOPA\LEVODOPA
     Dosage: DOSE: MORNING DOSE: 7.5 ML CONTINUOUS DOSE: 2.4ML EXTRA DOSE: 2.0 ML
     Route: 050
  6. DUODOPA [Suspect]
     Active Substance: CARBIDOPA\LEVODOPA
     Dosage: THE MORNING DOSE IS REDUCED WITH 0.5 ML.
     Route: 050
     Dates: start: 2017
  7. DUODOPA [Suspect]
     Active Substance: CARBIDOPA\LEVODOPA
     Dosage: MD: 6.2, CD: 2.4, ED: 2.0
     Route: 050
  8. SIFROL [Concomitant]
     Active Substance: PRAMIPEXOLE
     Indication: PRODUCT USED FOR UNKNOWN INDICATION
  9. DUODOPA [Suspect]
     Active Substance: CARBIDOPA\LEVODOPA
     Dosage: INCREASED THE CONTINUOUS DOSE WITH 0.1ML
     Route: 050
     Dates: start: 201706, end: 2017
  10. DUODOPA [Suspect]
     Active Substance: CARBIDOPA\LEVODOPA
     Dosage: REDUCE THE CONTINUOUS DOSE WITH 0.1ML
     Route: 050
     Dates: start: 2017, end: 2017
  11. DUODOPA [Suspect]
     Active Substance: CARBIDOPA\LEVODOPA
     Dosage: CD DECREASED
     Route: 050

REACTIONS (45)
  - Articular calcification [Not Recovered/Not Resolved]
  - Poor quality sleep [Recovered/Resolved]
  - Hypokinesia [Not Recovered/Not Resolved]
  - Dysgeusia [Not Recovered/Not Resolved]
  - Memory impairment [Not Recovered/Not Resolved]
  - Nocturia [Not Recovered/Not Resolved]
  - Tension [Unknown]
  - Constipation [Not Recovered/Not Resolved]
  - Insomnia [Recovered/Resolved]
  - Hyperkinesia [Not Recovered/Not Resolved]
  - Hallucination [Recovered/Resolved]
  - Fibroma [Recovered/Resolved]
  - Fall [Recovered/Resolved]
  - Stoma site erythema [Recovered/Resolved]
  - Micturition disorder [Not Recovered/Not Resolved]
  - Arthralgia [Not Recovered/Not Resolved]
  - Impulsive behaviour [Not Recovered/Not Resolved]
  - Freezing phenomenon [Recovering/Resolving]
  - Muscle rigidity [Recovering/Resolving]
  - Insomnia [Recovered/Resolved]
  - Stoma site discharge [Not Recovered/Not Resolved]
  - Dysuria [Not Recovered/Not Resolved]
  - Decreased appetite [Unknown]
  - Discomfort [Unknown]
  - Mobility decreased [Not Recovered/Not Resolved]
  - Memory impairment [Not Recovered/Not Resolved]
  - Chorea [Not Recovered/Not Resolved]
  - Skin disorder [Not Recovered/Not Resolved]
  - Flushing [Unknown]
  - Decreased appetite [Not Recovered/Not Resolved]
  - Stoma site discharge [Recovered/Resolved]
  - Drug effect variable [Not Recovered/Not Resolved]
  - Insomnia [Not Recovered/Not Resolved]
  - Dyschezia [Unknown]
  - Musculoskeletal stiffness [Not Recovered/Not Resolved]
  - Food craving [Not Recovered/Not Resolved]
  - On and off phenomenon [Not Recovered/Not Resolved]
  - Time perception altered [Not Recovered/Not Resolved]
  - Cognitive disorder [Unknown]
  - Dyskinesia [Recovered/Resolved]
  - Stoma site odour [Not Recovered/Not Resolved]
  - Cognitive disorder [Not Recovered/Not Resolved]
  - Stoma site extravasation [Recovered/Resolved]
  - Dyskinesia [Not Recovered/Not Resolved]
  - Stoma site erythema [Not Recovered/Not Resolved]

NARRATIVE: CASE EVENT DATE: 2017
